FAERS Safety Report 24108642 (Version 1)
Quarter: 2024Q3

REPORT INFORMATION
  Report Type: Report from Study
  Country: TH (occurrence: None)
  Receive Date: 20240718
  Receipt Date: 20240718
  Transmission Date: 20241017
  Serious: Yes (Other)
  Sender: ASTRAZENECA
  Company Number: 2020SE56156

PATIENT
  Age: 668 Month
  Sex: Male

DRUGS (1)
  1. IMFINZI [Suspect]
     Active Substance: DURVALUMAB
     Indication: Lung neoplasm malignant
     Dosage: 500.0MG UNKNOWN
     Route: 042
     Dates: start: 20200221

REACTIONS (1)
  - Generalised oedema [Unknown]

NARRATIVE: CASE EVENT DATE: 20200301
